FAERS Safety Report 4263896-2 (Version None)
Quarter: 2004Q1

REPORT INFORMATION
  Report Type: 
  Country: None (occurrence: None)
  Receive Date: 20040102
  Receipt Date: 20031217
  Transmission Date: 20041129
  Serious: Yes (Death, Life-Threatening)
  Sender: FDA-Public Use
  Company Number: JP_030901704

PATIENT
  Age: 40 Year
  Sex: Male

DRUGS (4)
  1. ONCOVIN [Suspect]
     Indication: LYMPHOMA
     Dosage: 2 MG/OTHER
     Route: 050
     Dates: start: 20030304, end: 20030304
  2. CYCLOPHOSPHAMIDE [Concomitant]
  3. ADRYAMYCIN (DOXORUBICIN) [Concomitant]
  4. PREDNISOLONE [Concomitant]

REACTIONS (6)
  - BONE MARROW DEPRESSION [None]
  - DISEASE RECURRENCE [None]
  - GASTROINTESTINAL NECROSIS [None]
  - METASTASES TO SMALL INTESTINE [None]
  - POST PROCEDURAL COMPLICATION [None]
  - SMALL INTESTINAL PERFORATION [None]
